FAERS Safety Report 14605096 (Version 2)
Quarter: 2018Q2

REPORT INFORMATION
  Report Type: Spontaneous
  Country: JP (occurrence: JP)
  Receive Date: 20180306
  Receipt Date: 20180402
  Transmission Date: 20180711
  Serious: Yes (Death, Congenital Anomaly)
  Sender: FDA-Public Use
  Company Number: JP-EISAI MEDICAL RESEARCH-EC-2018-036765

PATIENT

DRUGS (5)
  1. FYCOMPA [Suspect]
     Active Substance: PERAMPANEL
     Route: 064
     Dates: start: 20170307, end: 20170426
  2. E KEPPRA [Concomitant]
     Active Substance: LEVETIRACETAM
     Indication: FOETAL EXPOSURE DURING PREGNANCY
     Route: 064
     Dates: start: 20170519
  3. FYCOMPA [Suspect]
     Active Substance: PERAMPANEL
     Route: 064
     Dates: start: 20170303, end: 20170306
  4. FYCOMPA [Suspect]
     Active Substance: PERAMPANEL
     Indication: FOETAL EXPOSURE DURING PREGNANCY
     Route: 064
     Dates: start: 201702, end: 20170221
  5. FYCOMPA [Suspect]
     Active Substance: PERAMPANEL
     Route: 064
     Dates: start: 20170222, end: 20170302

REACTIONS (2)
  - Foetal exposure during pregnancy [Fatal]
  - Fallot^s tetralogy [Fatal]

NARRATIVE: CASE EVENT DATE: 2017
